FAERS Safety Report 4862789-7 (Version None)
Quarter: 2005Q4

REPORT INFORMATION
  Report Type: 
  Country: None (occurrence: None)
  Receive Date: 20051219
  Receipt Date: 20051205
  Transmission Date: 20060501
  Serious: Yes (Hospitalization, Other)
  Sender: FDA-Public Use
  Company Number: 2005164858

PATIENT
  Sex: Male
  Weight: 81.6475 kg

DRUGS (1)
  1. VIAGRA [Suspect]
     Indication: ERECTILE DYSFUNCTION
     Dosage: (100 MG)
     Dates: end: 20050101

REACTIONS (3)
  - DRUG INEFFECTIVE [None]
  - PROSTATE CANCER [None]
  - URINARY RETENTION [None]
